FAERS Safety Report 8910979 (Version 1)
Quarter: 2012Q4

REPORT INFORMATION
  Report Type: 
  Country: GB (occurrence: GB)
  Receive Date: 20121116
  Receipt Date: 20121116
  Transmission Date: 20130627
  Serious: Yes (Other)
  Sender: FDA-Public Use
  Company Number: GB-TEVA-369243ISR

PATIENT

DRUGS (2)
  1. METRONIDAZOLE [Suspect]
  2. AFINITOR [Interacting]

REACTIONS (2)
  - Abdominal abscess [Unknown]
  - Drug interaction [Unknown]
